FAERS Safety Report 10924133 (Version 1)
Quarter: 2015Q1

REPORT INFORMATION
  Report Type: Spontaneous
  Country: GB (occurrence: GB)
  Receive Date: 20150318
  Receipt Date: 20150318
  Transmission Date: 20150721
  Serious: Yes (Other)
  Sender: FDA-Public Use
  Company Number: GB-AUROBINDO-AUR-APL-2015-02158

PATIENT
  Age: 17 Year
  Sex: Male

DRUGS (2)
  1. PARAMAX /00020001/ [Suspect]
     Active Substance: ACETAMINOPHEN
     Indication: PRODUCT USED FOR UNKNOWN INDICATION
     Dosage: UNK
     Route: 065
  2. FLUOXETINE [Suspect]
     Active Substance: FLUOXETINE\FLUOXETINE HYDROCHLORIDE
     Indication: PRODUCT USED FOR UNKNOWN INDICATION
     Dosage: 20 MG, DAILY
     Route: 065

REACTIONS (11)
  - Abnormal dreams [Unknown]
  - Completed suicide [Unknown]
  - Akathisia [Unknown]
  - Amnesia [Unknown]
  - Agitation [Unknown]
  - Emotional distress [Unknown]
  - Self esteem decreased [Unknown]
  - Alcohol problem [Unknown]
  - Alcohol abuse [Unknown]
  - Confusional state [Unknown]
  - Aggression [Unknown]
